FAERS Safety Report 6135525-4 (Version None)
Quarter: 2009Q1

REPORT INFORMATION
  Report Type: 
  Country: None (occurrence: None)
  Receive Date: 20090327
  Receipt Date: 20090324
  Transmission Date: 20090719
  Serious: Yes (Other)
  Sender: FDA-Public Use
  Company Number: B0566131A

PATIENT
  Age: 57 Year
  Sex: Female

DRUGS (9)
  1. CARVEDILOL [Suspect]
     Indication: MYOCARDIAL INFARCTION
     Route: 048
     Dates: start: 20081001
  2. PLAVIX [Concomitant]
  3. TROMALYT [Concomitant]
  4. RAMIPRIL [Concomitant]
  5. PRAVASTATIN [Concomitant]
  6. LORSEDAL [Concomitant]
  7. AERIUS [Concomitant]
  8. ANAFRANIL [Concomitant]
  9. XANAX [Concomitant]

REACTIONS (2)
  - CONJUNCTIVITIS [None]
  - DRY EYE [None]
